FAERS Safety Report 9830927 (Version 8)
Quarter: 2014Q4

REPORT INFORMATION
  Report Type: Report from Study
  Country: DE (occurrence: DE)
  Receive Date: 20140120
  Receipt Date: 20141224
  Transmission Date: 20150529
  Serious: Yes (Hospitalization, Other)
  Sender: FDA-Public Use
  Company Number: PHHO2014DE000880

PATIENT
  Age: 4 Year
  Sex: Male

DRUGS (4)
  1. IBUPROFEN. [Concomitant]
     Active Substance: IBUPROFEN
     Indication: PRODUCT USED FOR UNKNOWN INDICATION
     Dosage: QD
     Route: 065
  2. DECORTIN [Concomitant]
     Active Substance: PREDNISONE
     Indication: PRODUCT USED FOR UNKNOWN INDICATION
     Dosage: 2.5 MG, QD
     Route: 048
     Dates: start: 20120214
  3. ACZ885 [Suspect]
     Active Substance: CANAKINUMAB
     Indication: JUVENILE IDIOPATHIC ARTHRITIS
     Dosage: 4 MG/KG, UNK
     Route: 058
     Dates: start: 20120514, end: 20131220
  4. ACZ885 [Suspect]
     Active Substance: CANAKINUMAB
     Dosage: 4 MG/KG, UNK
     Route: 058
     Dates: start: 20140123

REACTIONS (1)
  - Lymphadenitis [Unknown]

NARRATIVE: CASE EVENT DATE: 20140110
